FAERS Safety Report 15751589 (Version 1)
Quarter: 2018Q4

REPORT INFORMATION
  Report Type: Spontaneous
  Country: US (occurrence: US)
  Receive Date: 20181221
  Receipt Date: 20181221
  Transmission Date: 20190205
  Serious: No
  Sender: FDA-Public Use
  Company Number: US-UPSHER-SMITH LABORATORIES, LLC-2018USL00269

PATIENT
  Age: 65 Year
  Sex: Female
  Weight: 45.35 kg

DRUGS (5)
  1. KLOR-CON M [Suspect]
     Active Substance: POTASSIUM CHLORIDE
     Indication: MINERAL SUPPLEMENTATION
     Dosage: 10 MEQ, 3X/DAY
     Route: 048
     Dates: start: 201806, end: 20180618
  2. ^PREGAZONE^ [Concomitant]
     Dosage: 2.5 MG, 1X/DAY
  3. ^ASTILAZINE^ [Concomitant]
  4. FAMOTIDINE. [Concomitant]
     Active Substance: FAMOTIDINE
     Dosage: 20 MG, 2X/DAY
  5. FEROSOFT [Concomitant]
     Dosage: 40 MG, 2X/DAY

REACTIONS (1)
  - Choking [Recovered/Resolved]

NARRATIVE: CASE EVENT DATE: 20180613
